FAERS Safety Report 20881977 (Version 1)
Quarter: 2022Q2

REPORT INFORMATION
  Report Type: Other
  Country: None (occurrence: US)
  Receive Date: 20220527
  Receipt Date: 20220527
  Transmission Date: 20220721
  Serious: Yes (Other)
  Sender: FDA-Public Use
  Company Number: US-Yung Shin Pharmaceutical Ind.  Co., Ltd.-2129253

PATIENT
  Age: 11 Year
  Sex: Female

DRUGS (5)
  1. AZITHROMYCIN DIHYDRATE [Suspect]
     Active Substance: AZITHROMYCIN DIHYDRATE
     Route: 042
  2. Milrinone (infusion), (Upon ICU admission) [Concomitant]
  3. Intermittent Furosemide (Upon ICU admission) [Concomitant]
  4. Epinephrine infusion (Upon ICU admission) [Concomitant]
  5. Nitroprusside infusion [Concomitant]

REACTIONS (5)
  - Hypotension [None]
  - Hepatomegaly [None]
  - Microcytic anaemia [None]
  - Developmental delay [None]
  - Seizure [None]
